FAERS Safety Report 4634281-6 (Version None)
Quarter: 2005Q2

REPORT INFORMATION
  Report Type: 
  Country: None (occurrence: None)
  Receive Date: 20050413
  Receipt Date: 20050404
  Transmission Date: 20051028
  Serious: Yes (Hospitalization)
  Sender: FDA-Public Use
  Company Number: PHFR2005GB01390

PATIENT
  Age: 54 Year
  Sex: Male

DRUGS (3)
  1. VOLTAROL [Suspect]
     Indication: BACK PAIN
     Dosage: 75 MG, BID
     Route: 048
     Dates: start: 20050117, end: 20050131
  2. CO-CODAMOL [Concomitant]
     Indication: BACK PAIN
     Route: 048
     Dates: start: 20050117
  3. PARACETAMOL [Concomitant]
     Indication: BACK PAIN
     Route: 048
     Dates: start: 20050117

REACTIONS (7)
  - ANGIONEUROTIC OEDEMA [None]
  - DYSPEPSIA [None]
  - DYSPHAGIA [None]
  - EROSIVE OESOPHAGITIS [None]
  - HYPERKALAEMIA [None]
  - HYPERNATRAEMIA [None]
  - PRURITUS [None]
